FAERS Safety Report 16037486 (Version 1)
Quarter: 2019Q1

REPORT INFORMATION
  Report Type: Spontaneous
  Country: GB (occurrence: GB)
  Receive Date: 20190305
  Receipt Date: 20190305
  Transmission Date: 20190418
  Serious: Yes (Hospitalization)
  Sender: FDA-Public Use
  Company Number: GB-TEVA-2019-GB-1018136

PATIENT
  Age: 80 Year
  Sex: Female
  Weight: 49 kg

DRUGS (8)
  1. BISOPROLOL FUMARATE. [Concomitant]
     Active Substance: BISOPROLOL FUMARATE
  2. CALCICHEW D3 [Concomitant]
     Active Substance: CALCIUM\CHOLECALCIFEROL
  3. PERINDOPRIL [Suspect]
     Active Substance: PERINDOPRIL
     Indication: HYPERTENSION
     Dosage: 4 MILLIGRAM DAILY; IN THE MORNING.
     Route: 048
  4. ATORVASTATIN [Concomitant]
     Active Substance: ATORVASTATIN
  5. ALENDRONIC ACID [Concomitant]
     Active Substance: ALENDRONIC ACID
  6. BUMETANIDE. [Suspect]
     Active Substance: BUMETANIDE
     Indication: PLEURAL EFFUSION
     Dosage: 4 MILLIGRAM DAILY;
     Route: 048
     Dates: start: 20190103
  7. APIXABAN [Concomitant]
     Active Substance: APIXABAN
  8. LETROZOLE. [Concomitant]
     Active Substance: LETROZOLE

REACTIONS (1)
  - Acute kidney injury [Recovering/Resolving]

NARRATIVE: CASE EVENT DATE: 20190119
